FAERS Safety Report 9745617 (Version 1)
Quarter: 2013Q4

REPORT INFORMATION
  Report Type: Spontaneous
  Country: GB (occurrence: GB)
  Receive Date: 20131211
  Receipt Date: 20131211
  Transmission Date: 20140711
  Serious: Yes (Hospitalization)
  Sender: FDA-Public Use
  Company Number: GB-NOVOPROD-394225

PATIENT
  Age: 72 Year
  Sex: Male

DRUGS (1)
  1. NOVOMIX 30 FLEXPEN [Suspect]
     Indication: DIABETES MELLITUS
     Dosage: BID
     Dates: start: 201301

REACTIONS (1)
  - Lung infection [Unknown]
